FAERS Safety Report 23083114 (Version 1)
Quarter: 2023Q4

REPORT INFORMATION
  Report Type: Spontaneous
  Country: CN (occurrence: None)
  Receive Date: 20231019
  Receipt Date: 20231019
  Transmission Date: 20240110
  Serious: Yes (Hospitalization)
  Sender: FDA-Public Use
  Company Number: 2023A234276

PATIENT
  Age: 24690 Day
  Sex: Male
  Weight: 50 kg

DRUGS (5)
  1. TICAGRELOR [Suspect]
     Active Substance: TICAGRELOR
     Indication: Antiplatelet therapy
     Dosage: 180.0MG ONCE/SINGLE ADMINISTRATION
     Route: 048
     Dates: start: 20230912, end: 20230912
  2. TICAGRELOR [Suspect]
     Active Substance: TICAGRELOR
     Indication: Antiplatelet therapy
     Dosage: 90.0MG ONCE/SINGLE ADMINISTRATION
     Route: 048
     Dates: start: 20230913, end: 20230923
  3. ROSUVASTATIN [Concomitant]
     Active Substance: ROSUVASTATIN
     Indication: Antiplatelet therapy
  4. ASPIRIN [Concomitant]
     Active Substance: ASPIRIN
     Indication: Antiplatelet therapy
  5. RABEPRAZOLE SODIUM [Concomitant]
     Active Substance: RABEPRAZOLE SODIUM
     Indication: Antiplatelet therapy

REACTIONS (2)
  - Discomfort [Recovering/Resolving]
  - Dyspnoea [Recovering/Resolving]

NARRATIVE: CASE EVENT DATE: 20230914
